FAERS Safety Report 6445435-0 (Version None)
Quarter: 2009Q4

REPORT INFORMATION
  Report Type: 
  Country: None (occurrence: None)
  Receive Date: 20091118
  Receipt Date: 20091108
  Transmission Date: 20100525
  Serious: Yes (Life-Threatening)
  Sender: FDA-Public Use
  Company Number: Z0001682A

PATIENT
  Sex: Female
  Weight: 83.5 kg

DRUGS (10)
  1. OFATUMUMAB [Suspect]
     Route: 042
     Dates: start: 20090902, end: 20090902
  2. FLUDARABINE [Suspect]
     Route: 042
     Dates: start: 20090902
  3. CYCLOPHOSPHAMIDE [Suspect]
     Route: 042
     Dates: start: 20090902
  4. FENICORT [Concomitant]
     Indication: PREMEDICATION
     Route: 042
     Dates: start: 20090902, end: 20090902
  5. DIPHERGAN [Concomitant]
     Indication: PREMEDICATION
     Route: 042
     Dates: start: 20090902, end: 20090902
  6. ZANTAC [Concomitant]
     Indication: PREMEDICATION
     Route: 042
     Dates: start: 20090902, end: 20090904
  7. MILURIT [Concomitant]
     Route: 048
     Dates: start: 20090902, end: 20090904
  8. CLEMASTIN [Concomitant]
     Route: 042
     Dates: start: 20090902, end: 20090902
  9. PHENAZOLINUM [Concomitant]
     Indication: PREMEDICATION
     Route: 042
     Dates: start: 20090902, end: 20090902
  10. ATOSSA [Concomitant]
     Indication: PREMEDICATION
     Route: 042
     Dates: start: 20090902, end: 20090904

REACTIONS (4)
  - ALTERED STATE OF CONSCIOUSNESS [None]
  - ANAPHYLACTIC REACTION [None]
  - HYPOTONIA [None]
  - HYPOXIA [None]
